FAERS Safety Report 25706368 (Version 1)
Quarter: 2025Q3

REPORT INFORMATION
  Report Type: Spontaneous
  Country: US (occurrence: None)
  Receive Date: 20250820
  Receipt Date: 20250820
  Transmission Date: 20251021
  Serious: Yes (Hospitalization, Disabling, Other)
  Sender: FDA-CTU
  Company Number: None

PATIENT
  Age: 41 Year
  Sex: Female
  Weight: 112.5 kg

DRUGS (1)
  1. CHLORHEXIDINE GLUCONATE [Suspect]
     Active Substance: CHLORHEXIDINE GLUCONATE
     Indication: Preoperative care
     Dates: start: 20250816, end: 20250816

REACTIONS (4)
  - Documented hypersensitivity to administered product [None]
  - Application site rash [None]
  - Loss of personal independence in daily activities [None]
  - Post procedural complication [None]

NARRATIVE: CASE EVENT DATE: 20250816
